FAERS Safety Report 4439292-1 (Version None)
Quarter: 2004Q3

REPORT INFORMATION
  Report Type: 
  Country: None (occurrence: None)
  Receive Date: 20040831
  Receipt Date: 20040817
  Transmission Date: 20050211
  Serious: Yes (Hospitalization)
  Sender: FDA-Public Use
  Company Number: 200460

PATIENT
  Sex: Female

DRUGS (10)
  1. AVONEX [Suspect]
     Indication: MULTIPLE SCLEROSIS
     Dosage: 30 MCG QW IM
     Route: 030
  2. PAXIL [Concomitant]
  3. DIAZEPAM [Concomitant]
  4. LANOXIN [Concomitant]
  5. OXYBUTYNIN CHLORIDE [Concomitant]
  6. BACLOFEN [Concomitant]
  7. TRIAMTERENE AND HYDROCHLOROTHIAZID [Concomitant]
  8. VITAMINS NOS [Concomitant]
  9. SEPTRA [Concomitant]
  10. MULTI-VITAMINS [Concomitant]

REACTIONS (1)
  - DECUBITUS ULCER [None]
